FAERS Safety Report 4590611-5 (Version None)
Quarter: 2005Q1

REPORT INFORMATION
  Report Type: 
  Country: None (occurrence: None)
  Receive Date: 20050222
  Receipt Date: 20050222
  Transmission Date: 20050727
  Serious: Yes (Other)
  Sender: FDA-Public Use
  Company Number: None

PATIENT
  Sex: Female
  Weight: 82.5547 kg

DRUGS (12)
  1. CRESTOR [Suspect]
     Indication: HYPERLIPIDAEMIA
     Dosage: 10 MG PO QHS
     Route: 048
     Dates: start: 20041217, end: 20050217
  2. GLUCOPHAGE [Concomitant]
  3. HUMULIN 70/30 [Concomitant]
  4. PREMARIN [Concomitant]
  5. MACRODANTIN [Concomitant]
  6. ZETIA [Concomitant]
  7. PRINIVIL [Concomitant]
  8. ASPIRIN [Concomitant]
  9. VITAMIN E [Concomitant]
  10. VITAMIN B COMPLEX CAP [Concomitant]
  11. REGLAN [Concomitant]
  12. ZYRTEC [Concomitant]

REACTIONS (6)
  - ALANINE AMINOTRANSFERASE INCREASED [None]
  - ASPARTATE AMINOTRANSFERASE INCREASED [None]
  - ASTHENIA [None]
  - BLOOD CREATINE PHOSPHOKINASE INCREASED [None]
  - CONDITION AGGRAVATED [None]
  - PAIN IN EXTREMITY [None]
